FAERS Safety Report 7313417-2 (Version None)
Quarter: 2011Q1

REPORT INFORMATION
  Report Type: 
  Country: None (occurrence: None)
  Receive Date: 20110225
  Receipt Date: 20110215
  Transmission Date: 20110831
  Serious: Yes (Other)
  Sender: FDA-Public Use
  Company Number: US-PFIZER INC-2010176210

PATIENT
  Sex: Female
  Weight: 61.2 kg

DRUGS (4)
  1. DEPO-PROVERA [Suspect]
     Indication: CONTRACEPTION
     Dosage: 150 MG, EVERY 12 WEEKS
     Route: 030
     Dates: start: 20090331, end: 20090331
  2. DEPO-PROVERA [Suspect]
     Dosage: 150 MG, EVERY 12 WEEKS
     Route: 030
     Dates: start: 20100519, end: 20100519
  3. DEPO-PROVERA [Suspect]
     Dosage: 150 MG, EVERY 12 WEEKS
     Route: 030
     Dates: start: 20101103, end: 20101103
  4. DEPO-PROVERA [Suspect]
     Dosage: 150 MG, EVERY 12 WEEKS
     Route: 030
     Dates: start: 20100811, end: 20100811

REACTIONS (2)
  - DRUG INEFFECTIVE [None]
  - UNINTENDED PREGNANCY [None]
